FAERS Safety Report 8994632 (Version 1)
Quarter: 2012Q4

REPORT INFORMATION
  Report Type: Spontaneous
  Country: US (occurrence: None)
  Receive Date: 20121228
  Receipt Date: 20121228
  Transmission Date: 20130627
  Serious: Yes (Disabling)
  Sender: FDA-Public Use
  Company Number: None

PATIENT
  Age: 47 Year
  Sex: Male
  Weight: 98.88 kg

DRUGS (2)
  1. CIPROFLOXACIN 750 MG BAYER [Suspect]
     Indication: UTI
     Route: 048
     Dates: start: 20110324, end: 20110401
  2. CIPROFLOXACIN 750 MG BAYER [Suspect]
     Indication: UTI
     Dates: start: 20110519, end: 20110527

REACTIONS (4)
  - Tinnitus [None]
  - Arthralgia [None]
  - Pain [None]
  - Tendonitis [None]
